FAERS Safety Report 9675411 (Version 2)
Quarter: 2013Q4

REPORT INFORMATION
  Report Type: Spontaneous
  Country: US (occurrence: US)
  Receive Date: 20131107
  Receipt Date: 20131107
  Transmission Date: 20140711
  Serious: Yes (Hospitalization, Disabling, Other)
  Sender: FDA-Public Use
  Company Number: US-009507513-1111USA02189

PATIENT
  Sex: Female
  Weight: 79.38 kg

DRUGS (7)
  1. FOSAMAX [Suspect]
     Indication: OSTEOPOROSIS
     Route: 048
     Dates: start: 1995, end: 201002
  2. FOSAMAX [Suspect]
     Dosage: UNK
     Route: 048
     Dates: start: 1998
  3. FOSAMAX [Suspect]
     Dosage: 10 MG, UNK
     Route: 048
     Dates: start: 2001, end: 2010
  4. FOSAMAX [Suspect]
     Dosage: 70 MG, QW
     Route: 048
     Dates: start: 20070407, end: 20080425
  5. FOSAMAX [Suspect]
     Indication: OSTEOPOROSIS
     Dosage: 70 MG, QW
     Route: 048
     Dates: start: 20080418, end: 20100104
  6. SYNTHROID [Concomitant]
  7. FOSAMAX [Suspect]
     Indication: OSTEOPOROSIS
     Dosage: 70 MG, UNK
     Dates: start: 20080905, end: 20091017

REACTIONS (63)
  - Femur fracture [Not Recovered/Not Resolved]
  - Intramedullary rod insertion [Unknown]
  - Osteoporosis [Not Recovered/Not Resolved]
  - Upper limb fracture [Unknown]
  - Open reduction of fracture [Unknown]
  - Fall [Unknown]
  - Arthralgia [Unknown]
  - Synovial cyst [Unknown]
  - Tooth disorder [Unknown]
  - Foot deformity [Unknown]
  - Iliotibial band syndrome [Unknown]
  - Medical device discomfort [Unknown]
  - Dysaesthesia [Unknown]
  - Dyspnoea exertional [Unknown]
  - Left ventricular hypertrophy [Unknown]
  - Aortic arteriosclerosis [Unknown]
  - Osteoarthritis [Unknown]
  - Anxiety [Unknown]
  - Depression [Unknown]
  - Weight increased [Unknown]
  - Trigger finger [Unknown]
  - Trigger finger [Unknown]
  - Arthropathy [Unknown]
  - Fall [Unknown]
  - Rib fracture [Unknown]
  - Osteoarthritis [Unknown]
  - Ligament rupture [Unknown]
  - Ankle fracture [Unknown]
  - Bone fragmentation [Unknown]
  - Tendon disorder [Unknown]
  - Plantar fasciitis [Unknown]
  - Tendonitis [Unknown]
  - Limb injury [Unknown]
  - Haematoma [Unknown]
  - Fall [Unknown]
  - Fall [Unknown]
  - Bursitis [Unknown]
  - Blood thyroid stimulating hormone decreased [Unknown]
  - Thyroxine free increased [Unknown]
  - Hypertension [Unknown]
  - Blood cholesterol increased [Unknown]
  - Hypoaesthesia [Unknown]
  - Medical device removal [Unknown]
  - Joint crepitation [Unknown]
  - Medical device removal [Unknown]
  - Lumbar radiculopathy [Unknown]
  - Incision site haemorrhage [Unknown]
  - Paraesthesia [Unknown]
  - Lumbar spinal stenosis [Unknown]
  - Intervertebral disc protrusion [Unknown]
  - Abscess jaw [Not Recovered/Not Resolved]
  - Tooth disorder [Unknown]
  - Device breakage [Unknown]
  - Tooth disorder [Unknown]
  - Osteoarthritis [Unknown]
  - Dental caries [Unknown]
  - Tooth fracture [Unknown]
  - Arthralgia [Unknown]
  - Pain in extremity [Unknown]
  - Pain in extremity [Unknown]
  - Muscle spasms [Unknown]
  - Pain in extremity [Unknown]
  - Back pain [Unknown]
